FAERS Safety Report 19063443 (Version 1)
Quarter: 2021Q1

REPORT INFORMATION
  Report Type: Spontaneous
  Country: US (occurrence: US)
  Receive Date: 20210326
  Receipt Date: 20210326
  Transmission Date: 20210420
  Serious: Yes (Hospitalization, Other)
  Sender: FDA-Public Use
  Company Number: US-ASTRAZENECA-2021A189046

PATIENT
  Age: 25233 Day
  Sex: Female
  Weight: 68 kg

DRUGS (1)
  1. PULMICORT FLEXHALER [Suspect]
     Active Substance: BUDESONIDE
     Indication: CHRONIC OBSTRUCTIVE PULMONARY DISEASE
     Dosage: 1 INHALATION TWICE DAILY
     Route: 055
     Dates: start: 20200807

REACTIONS (10)
  - PCO2 increased [Recovered/Resolved]
  - Weight decreased [Not Recovered/Not Resolved]
  - Product use issue [Unknown]
  - Device malfunction [Not Recovered/Not Resolved]
  - Fall [Recovered/Resolved]
  - Drug dose omission by device [Not Recovered/Not Resolved]
  - Memory impairment [Not Recovered/Not Resolved]
  - Oxygen saturation decreased [Recovered/Resolved]
  - Product taste abnormal [Not Recovered/Not Resolved]
  - Feeding disorder [Recovered/Resolved]

NARRATIVE: CASE EVENT DATE: 202011
